FAERS Safety Report 4803691-6 (Version None)
Quarter: 2005Q4

REPORT INFORMATION
  Report Type: 
  Country: None (occurrence: None)
  Receive Date: 20051013
  Receipt Date: 20050915
  Transmission Date: 20060501
  Serious: Yes (Other)
  Sender: FDA-Public Use
  Company Number: 2005130471

PATIENT
  Age: 39 Year
  Sex: Female

DRUGS (2)
  1. DEPO-SUBQ PROVERA 104 [Suspect]
     Indication: CONTRACEPTION
     Dosage: 104 MG (104 MG, LAST INJECTION), SUBCUTANEOUS
     Route: 058
     Dates: start: 20050914, end: 20050914
  2. ZOLOFT [Concomitant]

REACTIONS (7)
  - DYSPNOEA [None]
  - HYPERSENSITIVITY [None]
  - PRURITUS GENERALISED [None]
  - SNEEZING [None]
  - THROAT TIGHTNESS [None]
  - URINARY TRACT DISORDER [None]
  - URTICARIA [None]
